FAERS Safety Report 10184923 (Version 3)
Quarter: 2014Q2

REPORT INFORMATION
  Report Type: Report from Study
  Country: CA (occurrence: CA)
  Receive Date: 20140521
  Receipt Date: 20140602
  Transmission Date: 20141212
  Serious: Yes (Death, Other)
  Sender: FDA-Public Use
  Company Number: CA-ROCHE-1388001

PATIENT
  Age: 91 Year
  Sex: Female

DRUGS (2)
  1. RANIBIZUMAB [Suspect]
     Indication: PRODUCT USED FOR UNKNOWN INDICATION
     Route: 050
     Dates: start: 20101228
  2. RANIBIZUMAB [Suspect]
     Route: 050
     Dates: start: 20110907, end: 20110907

REACTIONS (2)
  - Death [Fatal]
  - Diabetes mellitus [Unknown]
